FAERS Safety Report 25934278 (Version 1)
Quarter: 2025Q4

REPORT INFORMATION
  Report Type: Report from Study
  Country: IN (occurrence: None)
  Receive Date: 20251017
  Receipt Date: 20251017
  Transmission Date: 20260118
  Serious: Yes (Death)
  Sender: ENCUBE ETHICALS PVT. LTD.
  Company Number: IN-Encube-002524

PATIENT

DRUGS (3)
  1. TRETINOIN [Suspect]
     Active Substance: TRETINOIN
     Indication: Acute promyelocytic leukaemia
     Dosage: RECEIVED 25 MG/M2 IN 2 DIVIDED DOSES
  2. ARSENIC TRIOXIDE [Suspect]
     Active Substance: ARSENIC TRIOXIDE
     Indication: Acute promyelocytic leukaemia
  3. CYTARABINE [Concomitant]
     Active Substance: CYTARABINE
     Dosage: PER CONSOLIDATION CYCLE.
     Route: 037

REACTIONS (2)
  - Off label use [Unknown]
  - Differentiation syndrome [Fatal]
